FAERS Safety Report 12442069 (Version 1)
Quarter: 2016Q2

REPORT INFORMATION
  Report Type: Spontaneous
  Country: US (occurrence: None)
  Receive Date: 20160606
  Receipt Date: 20160606
  Transmission Date: 20160815
  Serious: Yes (Hospitalization)
  Sender: FDA-Public Use
  Company Number: None

PATIENT
  Age: 54 Year
  Sex: Male
  Weight: 103.3 kg

DRUGS (2)
  1. ENOXAPARIN [Suspect]
     Active Substance: ENOXAPARIN
     Indication: ATRIAL FIBRILLATION
     Route: 058
     Dates: start: 20160328, end: 20160508
  2. WARFARIN [Suspect]
     Active Substance: WARFARIN
     Route: 048
     Dates: start: 20110419, end: 20160508

REACTIONS (12)
  - Haemorrhage [None]
  - Contusion [None]
  - Swelling [None]
  - Gingival bleeding [None]
  - Arthralgia [None]
  - Cellulitis [None]
  - Pain in extremity [None]
  - Pyrexia [None]
  - Acute kidney injury [None]
  - International normalised ratio increased [None]
  - Melaena [None]
  - White blood cell count increased [None]

NARRATIVE: CASE EVENT DATE: 20160508
